FAERS Safety Report 5417729-9 (Version None)
Quarter: 2007Q3

REPORT INFORMATION
  Report Type: 
  Country: None (occurrence: None)
  Receive Date: 20070815
  Receipt Date: 20070815
  Transmission Date: 20080115
  Serious: Yes (Hospitalization)
  Sender: FDA-Public Use
  Company Number: None

PATIENT
  Sex: Male
  Weight: 77.1115 kg

DRUGS (7)
  1. TAXOL [Suspect]
     Indication: NEOPLASM MALIGNANT
     Dosage: (THERAPY DATES: PRIOR TO ADMISSION)
  2. NEXIUM [Concomitant]
  3. ATACAND [Concomitant]
  4. ATIVAN [Concomitant]
  5. COMPAZINE [Concomitant]
  6. PERCOCET [Concomitant]
  7. DECADRON [Concomitant]

REACTIONS (4)
  - DEHYDRATION [None]
  - DYSPEPSIA [None]
  - OESOPHAGITIS [None]
  - ORAL INTAKE REDUCED [None]
